FAERS Safety Report 5223588-X (Version None)
Quarter: 2007Q1

REPORT INFORMATION
  Report Type: 
  Country: None (occurrence: None)
  Receive Date: 20070125
  Receipt Date: 20070111
  Transmission Date: 20070707
  Serious: Yes (Other)
  Sender: FDA-Public Use
  Company Number: S06-ITA-04107-01

PATIENT
  Age: 75 Year
  Sex: Male

DRUGS (4)
  1. MEMANTINE HCL [Suspect]
     Indication: DEMENTIA ALZHEIMER'S TYPE
     Dosage: 10 MG BID PO
     Route: 048
     Dates: start: 20051117, end: 20051202
  2. QUETIAPINE FUMARATE [Suspect]
     Indication: DEMENTIA
     Dosage: 50 MG QD PO
     Route: 048
     Dates: start: 20050701, end: 20051202
  3. QUETIAPINE FUMARATE [Suspect]
     Indication: DEMENTIA
     Dosage: 50 MG QD PO
     Route: 048
     Dates: start: 20051205
  4. VALPROIC ACID [Concomitant]

REACTIONS (7)
  - CONVULSION [None]
  - DYSPHASIA [None]
  - ELECTROENCEPHALOGRAM ABNORMAL [None]
  - FAECAL INCONTINENCE [None]
  - LOSS OF CONSCIOUSNESS [None]
  - MALAISE [None]
  - TRISMUS [None]
